FAERS Safety Report 4995168-2 (Version None)
Quarter: 2006Q2

REPORT INFORMATION
  Report Type: 
  Country: None (occurrence: None)
  Receive Date: 20060508
  Receipt Date: 20060425
  Transmission Date: 20061013
  Serious: Yes (Hospitalization)
  Sender: FDA-Public Use
  Company Number: US-MERCK-0604USA04039

PATIENT
  Age: 70 Year
  Sex: Male
  Weight: 109 kg

DRUGS (9)
  1. VIOXX [Suspect]
     Indication: ARTHRITIS
     Route: 048
     Dates: start: 20001101, end: 20040901
  2. CELEBREX [Suspect]
     Route: 065
  3. PRILOSEC [Concomitant]
     Route: 065
  4. NEXIUM [Concomitant]
     Route: 065
  5. LIPITOR [Concomitant]
     Route: 065
  6. ALTACE [Concomitant]
     Route: 065
  7. SKELAXIN [Concomitant]
     Route: 065
  8. COUMADIN [Concomitant]
     Route: 065
  9. FUROSEMIDE [Concomitant]
     Route: 065

REACTIONS (3)
  - ARTHROPATHY [None]
  - CARDIAC DISORDER [None]
  - MYOCARDIAL INFARCTION [None]
